FAERS Safety Report 6618667-6 (Version None)
Quarter: 2010Q1

REPORT INFORMATION
  Report Type: 
  Country: None (occurrence: None)
  Receive Date: 20100308
  Receipt Date: 20100222
  Transmission Date: 20100710
  Serious: Yes (Hospitalization, Other)
  Sender: FDA-Public Use
  Company Number: US-ELI_LILLY_AND_COMPANY-US200911005427

PATIENT
  Sex: Female

DRUGS (8)
  1. FORTEO [Suspect]
     Dosage: UNK, UNKNOWN
     Dates: start: 20090601, end: 20090907
  2. SYNTHROID [Concomitant]
     Dosage: 100 UG, DAILY (1/D)
  3. ZOCOR [Concomitant]
     Dosage: 20 MG, DAILY (1/D)
  4. LASIX [Concomitant]
     Dosage: 20 MG, DAILY (1/D)
  5. ENTERIC ASPIRIN [Concomitant]
     Dosage: 325 MG, DAILY (1/D)
     Route: 048
  6. DIOVAN [Concomitant]
     Dosage: 80 MG, DAILY (1/D)
  7. INSULIN [Concomitant]
  8. INSULIN [Concomitant]
     Dates: start: 20090901, end: 20090901

REACTIONS (4)
  - DEHYDRATION [None]
  - FALL [None]
  - ULNA FRACTURE [None]
  - UNRESPONSIVE TO STIMULI [None]
